FAERS Safety Report 23410036 (Version 1)
Quarter: 2024Q1

REPORT INFORMATION
  Report Type: Spontaneous
  Country: IT (occurrence: None)
  Receive Date: 20240117
  Receipt Date: 20240117
  Transmission Date: 20240410
  Serious: Yes (Hospitalization, Other)
  Sender: FDA-Public Use
  Company Number: 2024A012112

PATIENT
  Age: 68 Year
  Sex: Female
  Weight: 60 kg

DRUGS (9)
  1. QUETIAPINE [Suspect]
     Active Substance: QUETIAPINE
     Route: 048
  2. QUETIAPINE [Suspect]
     Active Substance: QUETIAPINE
     Route: 048
  3. VENLAFAXINE [Suspect]
     Active Substance: VENLAFAXINE HYDROCHLORIDE
  4. VENLAFAXINE [Suspect]
     Active Substance: VENLAFAXINE HYDROCHLORIDE
  5. LAMOTRIGINE [Suspect]
     Active Substance: LAMOTRIGINE
  6. LAMOTRIGINE [Suspect]
     Active Substance: LAMOTRIGINE
  7. LITHIUM CARBONATE [Suspect]
     Active Substance: LITHIUM CARBONATE
  8. LORAZEPAM [Suspect]
     Active Substance: LORAZEPAM
  9. ESTAZOLAM [Suspect]
     Active Substance: ESTAZOLAM

REACTIONS (1)
  - Serotonin syndrome [Unknown]
